FAERS Safety Report 19763514 (Version 1)
Quarter: 2021Q3

REPORT INFORMATION
  Report Type: Spontaneous
  Country: US (occurrence: US)
  Receive Date: 20210830
  Receipt Date: 20210830
  Transmission Date: 20211014
  Serious: No
  Sender: FDA-Public Use
  Company Number: US-009507513-2108USA002489

PATIENT
  Sex: Female

DRUGS (1)
  1. KEYTRUDA [Suspect]
     Active Substance: PEMBROLIZUMAB
     Indication: SMALL CELL LUNG CANCER
     Dosage: 200 MILLIGRAM, Q3W
     Dates: start: 2021

REACTIONS (2)
  - Therapeutic response unexpected [Unknown]
  - Allergy test negative [Unknown]

NARRATIVE: CASE EVENT DATE: 2021
